FAERS Safety Report 21989152 (Version 1)
Quarter: 2023Q1

REPORT INFORMATION
  Report Type: Spontaneous
  Country: DE (occurrence: DE)
  Receive Date: 20230214
  Receipt Date: 20230214
  Transmission Date: 20230418
  Serious: Yes (Hospitalization, Other)
  Sender: FDA-Public Use
  Company Number: DE-BRISTOL-MYERS SQUIBB COMPANY-2023-013799

PATIENT
  Age: 82 Year
  Sex: Female

DRUGS (14)
  1. ELIQUIS [Suspect]
     Active Substance: APIXABAN
     Indication: Cerebrovascular accident prophylaxis
     Dosage: FREQUENCY: ELIQUIS 2.5 MG, 1/2-0-1/2.
  2. ELIQUIS [Suspect]
     Active Substance: APIXABAN
     Dosage: FREQUENCY: ELIQUIS 2.5 MG, 1-0-1.
  3. LEVOTHYROXINE SODIUM\POTASSIUM IODIDE [Concomitant]
     Active Substance: LEVOTHYROXINE SODIUM\POTASSIUM IODIDE
     Indication: Product used for unknown indication
  4. DIGITOXIN [Concomitant]
     Active Substance: DIGITOXIN
     Indication: Product used for unknown indication
     Dosage: FREQUENCY: HALF TABLET IN MORNING
  5. ALLOPURINOL [Concomitant]
     Active Substance: ALLOPURINOL
     Indication: Product used for unknown indication
  6. ATORVASTATIN SODIUM [Concomitant]
     Active Substance: ATORVASTATIN SODIUM
     Indication: Product used for unknown indication
  7. METOPROLOL SUCCINATE [Concomitant]
     Active Substance: METOPROLOL SUCCINATE
     Indication: Product used for unknown indication
  8. PANTOPRAZOL AAA [Concomitant]
     Indication: Product used for unknown indication
  9. PANTOPRAZOL AAA [Concomitant]
  10. RAMIPRIL [Concomitant]
     Active Substance: RAMIPRIL
     Indication: Product used for unknown indication
  11. TORSEMIDE [Concomitant]
     Active Substance: TORSEMIDE
     Indication: Product used for unknown indication
  12. XIPAMID RATIOPHARM [Concomitant]
     Indication: Product used for unknown indication
  13. FERRO-SANOL DUODENAL [Concomitant]
     Active Substance: FERROUS GLYCINE SULFATE
     Indication: Product used for unknown indication
  14. KALINOR BR [POTASSIUM CITRATE] [Concomitant]
     Indication: Product used for unknown indication

REACTIONS (12)
  - Intentional product use issue [Unknown]
  - Cerebral ischaemia [Unknown]
  - Hypertensive crisis [Unknown]
  - Chronic kidney disease [Unknown]
  - Hypokalaemia [Unknown]
  - Gastrointestinal haemorrhage [Unknown]
  - Pulmonary hypertension [Unknown]
  - Neoplasm malignant [Unknown]
  - COVID-19 [Unknown]
  - Hypertension [Unknown]
  - Hyperuricaemia [Unknown]
  - Hypothyroidism [Unknown]

NARRATIVE: CASE EVENT DATE: 20220801
